FAERS Safety Report 16871439 (Version 1)
Quarter: 2019Q4

REPORT INFORMATION
  Report Type: Spontaneous
  Country: US (occurrence: US)
  Receive Date: 20190930
  Receipt Date: 20190930
  Transmission Date: 20200122
  Serious: Yes (Hospitalization)
  Sender: FDA-Public Use
  Company Number: None

PATIENT
  Age: 14 Year
  Sex: Female

DRUGS (10)
  1. AEROCHAMBER PLS MIS LRG MASK [Concomitant]
  2. FLOVENT HFA AER 110 MCG [Concomitant]
  3. FOLIC ACID 1 MG [Concomitant]
  4. POLYETH GLYC POW 3350 NF [Concomitant]
  5. NITROFURANTIN SUS 25 MG / 5ML [Concomitant]
  6. JADENU [Suspect]
     Active Substance: DEFERASIROX
     Indication: HAEMOCHROMATOSIS
     Route: 048
     Dates: start: 20180226
  7. LEVETIRACETA SOL 100 MG/ML [Concomitant]
  8. ALBUTEROL NEB 0.083 % [Concomitant]
  9. MONTELUKAST CHW 5 MG [Concomitant]
  10. BUDESONIDE SUS 1 MG / 2 ML [Concomitant]

REACTIONS (1)
  - Hospitalisation [None]
